FAERS Safety Report 7229803-5 (Version None)
Quarter: 2011Q1

REPORT INFORMATION
  Report Type: 
  Country: None (occurrence: None)
  Receive Date: 20110117
  Receipt Date: 20110111
  Transmission Date: 20110831
  Serious: Yes (Hospitalization, Other)
  Sender: FDA-Public Use
  Company Number: NL-GENZYME-CLOF-1001394

PATIENT
  Sex: Male
  Weight: 120 kg

DRUGS (3)
  1. CYTARABINE [Suspect]
     Indication: ACUTE LEUKAEMIA
     Dosage: 250 MG, QD
     Route: 042
     Dates: start: 20101021, end: 20101030
  2. EVOLTRA [Suspect]
     Indication: ACUTE LEUKAEMIA
     Dosage: 25 MG, QOD
     Route: 042
     Dates: start: 20101022, end: 20101030
  3. IDARUBICIN [Suspect]
     Indication: ACUTE LEUKAEMIA
     Dosage: 25 MG, QOD
     Route: 042
     Dates: start: 20101021, end: 20101025

REACTIONS (4)
  - SPLENIC ABSCESS [None]
  - PYREXIA [None]
  - LIVER ABSCESS [None]
  - RENAL ABSCESS [None]
